FAERS Safety Report 4301299-2 (Version None)
Quarter: 2004Q1

REPORT INFORMATION
  Report Type: 
  Country: None (occurrence: None)
  Receive Date: 20040219
  Receipt Date: 20040127
  Transmission Date: 20041129
  Serious: Yes (Hospitalization, Other)
  Sender: FDA-Public Use
  Company Number: USA-2003-0009434

PATIENT
  Age: 39 Year
  Sex: Male
  Weight: 96.6 kg

DRUGS (14)
  1. OXYCONTIN [Suspect]
     Indication: PAIN
     Dosage: 80 MG, BID, ORAL
     Route: 048
     Dates: start: 20010101
  2. SOMA [Concomitant]
  3. PAXIL [Concomitant]
  4. AMOXICILLIN [Concomitant]
  5. RYNATAN (PHENYLEPHRINE TANNATE, MEPYRAMINE TANNATE, CHLORPHENAMINE TAN [Concomitant]
  6. GARLIC (GARLIC) [Concomitant]
  7. SALMON PILLS [Concomitant]
  8. CALCIUM [Concomitant]
  9. CLONAZEPAM [Concomitant]
  10. CODEINE [Concomitant]
  11. PREDNISONE [Concomitant]
  12. CENTRUM (MINERALS NOS, VITAMINS NOS) [Concomitant]
  13. ASPIRIN [Concomitant]
  14. LORAZEPAM [Concomitant]

REACTIONS (20)
  - ANXIETY [None]
  - BRONCHITIS [None]
  - CHRONIC SINUSITIS [None]
  - DECREASED APPETITE [None]
  - DEPRESSION [None]
  - DRUG DEPENDENCE [None]
  - DRUG INEFFECTIVE [None]
  - DRUG WITHDRAWAL SYNDROME [None]
  - HAEMOPTYSIS [None]
  - IRRITABILITY [None]
  - LUNG DISORDER [None]
  - MEMORY IMPAIRMENT [None]
  - MUSCLE TWITCHING [None]
  - NIGHTMARE [None]
  - PAIN [None]
  - PAIN IN EXTREMITY [None]
  - PANIC ATTACK [None]
  - POLYP [None]
  - RHINORRHOEA [None]
  - VARICOCELE [None]
